FAERS Safety Report 4775743-0 (Version None)
Quarter: 2005Q3

REPORT INFORMATION
  Report Type: 
  Country: None (occurrence: None)
  Receive Date: 20050922
  Receipt Date: 20040708
  Transmission Date: 20060218
  Serious: Yes (Other)
  Sender: FDA-Public Use
  Company Number: PHFR2004GB02769

PATIENT
  Age: 29 Year
  Sex: Female
  Weight: 95 kg

DRUGS (4)
  1. CLOZARIL [Suspect]
     Indication: SCHIZOPHRENIA
     Dosage: 600 MG, QD
     Route: 048
  2. AMISULPRIDE [Concomitant]
     Indication: SCHIZOPHRENIA
     Dosage: 100 MG, QD
     Route: 048
  3. VENTOLIN [Concomitant]
     Indication: ASTHMA
  4. SERETIDE [Concomitant]
     Indication: ASTHMA

REACTIONS (2)
  - DRUG EXPOSURE DURING PREGNANCY [None]
  - ULTRASOUND ANTENATAL SCREEN ABNORMAL [None]
